FAERS Safety Report 4827443-6 (Version None)
Quarter: 2005Q4

REPORT INFORMATION
  Report Type: 
  Country: None (occurrence: None)
  Receive Date: 20051114
  Receipt Date: 20051109
  Transmission Date: 20060501
  Serious: Yes (Death)
  Sender: FDA-Public Use
  Company Number: 2005AP05799

PATIENT
  Age: 21540 Day
  Sex: Female
  Weight: 110 kg

DRUGS (7)
  1. OMEPRAZOLE [Suspect]
     Route: 048
  2. METOPROLOL TARTRATE [Suspect]
     Route: 048
  3. COVERSYL PLUS [Suspect]
     Route: 048
  4. GLIMEPIRIDE [Suspect]
     Route: 048
  5. AVAPRO [Suspect]
     Route: 048
  6. MOBIC [Suspect]
     Route: 048
  7. METFORMIN HYDROCHLORIDE [Suspect]
     Route: 048

REACTIONS (12)
  - ABDOMINAL PAIN [None]
  - CIRCULATORY COLLAPSE [None]
  - HYPERKALAEMIA [None]
  - HYPERVENTILATION [None]
  - HYPOGLYCAEMIA [None]
  - HYPOTENSION [None]
  - LACTIC ACIDOSIS [None]
  - LEUKOCYTOSIS [None]
  - MALAISE [None]
  - NAUSEA [None]
  - RENAL FAILURE [None]
  - VOMITING [None]
